FAERS Safety Report 9165502 (Version 1)
Quarter: 2013Q1

REPORT INFORMATION
  Report Type: Report from Study
  Country: CA (occurrence: CA)
  Receive Date: 20130315
  Receipt Date: 20130315
  Transmission Date: 20140127
  Serious: Yes (Other)
  Sender: FDA-Public Use
  Company Number: CA-ABBOTT-13P-028-1062389-00

PATIENT
  Sex: Female

DRUGS (3)
  1. HUMIRA [Suspect]
     Indication: CROHN^S DISEASE
     Route: 058
     Dates: start: 20101018, end: 201204
  2. HUMIRA [Suspect]
     Route: 058
     Dates: start: 201208
  3. HUMIRA [Suspect]
     Route: 058
     Dates: start: 2012

REACTIONS (2)
  - Umbilical hernia [Recovered/Resolved]
  - Migraine [Unknown]
